FAERS Safety Report 8539184-2 (Version None)
Quarter: 2012Q3

REPORT INFORMATION
  Report Type: 
  Country: None (occurrence: None)
  Receive Date: 20120726
  Receipt Date: 20120718
  Transmission Date: 20120928
  Serious: Yes (Hospitalization)
  Sender: FDA-Public Use
  Company Number: IT-NOVOPROD-356352

PATIENT
  Age: 49 Year
  Sex: Male

DRUGS (1)
  1. NOVORAPID FLEXPEN [Suspect]
     Indication: PRODUCT USED FOR UNKNOWN INDICATION
     Dosage: UNK
     Route: 065
     Dates: start: 20120709

REACTIONS (3)
  - HYPOGLYCAEMIA [None]
  - SUICIDE ATTEMPT [None]
  - INTENTIONAL DRUG MISUSE [None]
